FAERS Safety Report 4340654-1 (Version None)
Quarter: 2004Q2

REPORT INFORMATION
  Report Type: 
  Country: None (occurrence: None)
  Receive Date: 20040414
  Receipt Date: 20040402
  Transmission Date: 20050107
  Serious: Yes (Hospitalization)
  Sender: FDA-Public Use
  Company Number: FRWYE343413OCT03

PATIENT
  Age: 38 Year
  Sex: Male

DRUGS (3)
  1. NEORAL [Suspect]
     Indication: PROPHYLAXIS AGAINST TRANSPLANT REJECTION
     Dosage: 400 MG DAILY AT THE EVENT ONSET; ORAL
     Route: 048
     Dates: start: 20030302
  2. CELLCEPT [Suspect]
     Indication: PROPHYLAXIS AGAINST TRANSPLANT REJECTION
     Dosage: 2 G DAILY; ORAL
     Route: 048
     Dates: start: 20030603
  3. PREDNISONE [Suspect]
     Indication: PROPHYLAXIS AGAINST TRANSPLANT REJECTION
     Dosage: 5 MG 1X PER 1 DAY; ORAL
     Route: 048
     Dates: start: 20030801, end: 20030904

REACTIONS (2)
  - CONDITION AGGRAVATED [None]
  - DIABETES MELLITUS INSULIN-DEPENDENT [None]
